FAERS Safety Report 5114885-7 (Version None)
Quarter: 2006Q3

REPORT INFORMATION
  Report Type: 
  Country: None (occurrence: None)
  Receive Date: 20060922
  Receipt Date: 20060922
  Transmission Date: 20061208
  Serious: No
  Sender: FDA-Public Use
  Company Number: None

PATIENT
  Sex: Female
  Weight: 72.5755 kg

DRUGS (1)
  1. ACTIGALL [Suspect]
     Indication: BILIARY CIRRHOSIS PRIMARY
     Dosage: 300MG

REACTIONS (1)
  - BURNING SENSATION [None]
